FAERS Safety Report 5063385-1 (Version None)
Quarter: 2006Q3

REPORT INFORMATION
  Report Type: 
  Country: None (occurrence: None)
  Receive Date: 20060727
  Receipt Date: 20060718
  Transmission Date: 20061208
  Serious: Yes (Other)
  Sender: FDA-Public Use
  Company Number: PHRM2006DZ02166

PATIENT
  Age: 45 Year
  Sex: Female

DRUGS (1)
  1. TAREG [Suspect]
     Indication: HYPERTENSION
     Route: 048

REACTIONS (3)
  - COUGH [None]
  - FACE OEDEMA [None]
  - RESPIRATORY DISORDER [None]
